FAERS Safety Report 4318153-2 (Version None)
Quarter: 2004Q1

REPORT INFORMATION
  Report Type: 
  Country: None (occurrence: None)
  Receive Date: 20040315
  Receipt Date: 20040305
  Transmission Date: 20041129
  Serious: Yes (Hospitalization, Other)
  Sender: FDA-Public Use
  Company Number: 2004-02-1379

PATIENT
  Age: 48 Year

DRUGS (2)
  1. PEG-INTRON [Suspect]
     Indication: HEPATITIS C
     Dosage: 120 MCG SUBCUTANEOUS
     Route: 058
     Dates: start: 20030912
  2. REBETOL [Suspect]
     Indication: HEPATITIS C
     Dosage: 1200 MG QD ORAL
     Route: 048
     Dates: start: 20030912

REACTIONS (2)
  - DIABETES MELLITUS [None]
  - DIABETIC KETOACIDOSIS [None]
